FAERS Safety Report 9522826 (Version 2)
Quarter: 2014Q2

REPORT INFORMATION
  Report Type: Spontaneous
  Country: CN (occurrence: CN)
  Receive Date: 20130913
  Receipt Date: 20140516
  Transmission Date: 20141212
  Serious: Yes (Hospitalization, Other)
  Sender: FDA-Public Use
  Company Number: CN-ROCHE-1272983

PATIENT
  Age: 66 Year
  Sex: Male

DRUGS (1)
  1. LUCENTIS [Suspect]
     Indication: AGE-RELATED MACULAR DEGENERATION
     Route: 050

REACTIONS (5)
  - Blindness unilateral [Recovering/Resolving]
  - Endophthalmitis [Recovering/Resolving]
  - Retinal haemorrhage [Recovering/Resolving]
  - Hypersensitivity [Recovering/Resolving]
  - Circumstance or information capable of leading to medication error [Unknown]
